FAERS Safety Report 4526758-9 (Version None)
Quarter: 2004Q4

REPORT INFORMATION
  Report Type: 
  Country: None (occurrence: None)
  Receive Date: 20041213
  Receipt Date: 20041203
  Transmission Date: 20050328
  Serious: No
  Sender: FDA-Public Use
  Company Number: 2004UW24784

PATIENT
  Age: 65 Year
  Sex: Male
  Weight: 113.39 kg

DRUGS (1)
  1. NOLVADEX [Suspect]
     Indication: BREAST CANCER
     Dosage: 20 MG QD
     Dates: start: 19990101

REACTIONS (3)
  - ATRIAL FIBRILLATION [None]
  - CORONARY ARTERY SURGERY [None]
  - HEART VALVE REPLACEMENT [None]
